FAERS Safety Report 8163155-1 (Version None)
Quarter: 2012Q1

REPORT INFORMATION
  Report Type: 
  Country: None (occurrence: None)
  Receive Date: 20120224
  Receipt Date: 20110801
  Transmission Date: 20120608
  Serious: No
  Sender: FDA-Public Use
  Company Number: US-PFIZER INC-K201100906

PATIENT
  Sex: Female
  Weight: 49.887 kg

DRUGS (8)
  1. CALCITRIOL [Concomitant]
     Dosage: UNK
  2. PREDNISONE [Concomitant]
     Dosage: UNK
  3. CALCIUM WITH VITAMIN D [Suspect]
     Dosage: UNK
     Route: 048
  4. FLECTOR [Suspect]
     Indication: ARTHRITIS
     Dosage: UNK PATCH, UNK
     Route: 061
     Dates: start: 20100101
  5. FLECTOR [Suspect]
     Indication: MUSCULOSKELETAL PAIN
  6. EYEVITE [Concomitant]
     Dosage: UNK
  7. SIMVASTATIN [Concomitant]
     Dosage: UNK
  8. MULTI-VITAMIN [Concomitant]
     Dosage: UNK

REACTIONS (1)
  - VITAMIN D INCREASED [None]
